FAERS Safety Report 18181025 (Version 1)
Quarter: 2020Q3

REPORT INFORMATION
  Report Type: Spontaneous
  Country: JP (occurrence: JP)
  Receive Date: 20200821
  Receipt Date: 20200821
  Transmission Date: 20201103
  Serious: Yes (Death, Hospitalization, Other)
  Sender: FDA-Public Use
  Company Number: JP-AMGEN-JPNSP2018148746

PATIENT
  Age: 61 Year
  Sex: Male
  Weight: 80 kg

DRUGS (22)
  1. ASPARA [Concomitant]
     Active Substance: CALCIUM ASPARTATE
     Dosage: UNK
     Route: 065
  2. TRULICITY [Concomitant]
     Active Substance: DULAGLUTIDE
     Dosage: UNK
     Route: 065
  3. TRULICITY [Concomitant]
     Active Substance: DULAGLUTIDE
     Dosage: UNK
     Route: 065
  4. JEVTANA [Concomitant]
     Active Substance: CABAZITAXEL
     Dosage: 39 MG, ONCE EVERY 1 MO
     Route: 050
  5. DECADRON [Concomitant]
     Active Substance: DEXAMETHASONE
     Dosage: 0.5 MILLIGRAM, BID
     Route: 048
     Dates: start: 201707
  6. CALFINA [Concomitant]
     Active Substance: ALFACALCIDOL
     Dosage: 0.5 MG, QD
     Route: 048
     Dates: end: 201810
  7. INSULIN GLARGINE [Concomitant]
     Active Substance: INSULIN GLARGINE
     Dosage: UNK
     Route: 065
  8. ASPARA?CA [Concomitant]
     Active Substance: CALCIUM ASPARTATE
     Dosage: 200 MG, TID
     Route: 048
     Dates: end: 201810
  9. DEXART [Concomitant]
     Active Substance: DEXAMETHASONE SODIUM PHOSPHATE
     Dosage: 6.6 MG, ONCE EVERY 1 MO
     Route: 050
  10. JEVTANA [Concomitant]
     Active Substance: CABAZITAXEL
     Dosage: 39 MG, ONCE EVERY 1 MO
     Route: 050
  11. JEVTANA [Concomitant]
     Active Substance: CABAZITAXEL
     Dosage: 39 MG, ONCE EVERY 1 MO
     Route: 050
  12. INSULIN GLARGINE [Concomitant]
     Active Substance: INSULIN GLARGINE
     Dosage: UNK
     Route: 065
  13. TRULICITY [Concomitant]
     Active Substance: DULAGLUTIDE
     Dosage: UNK
     Route: 065
  14. TRULICITY [Concomitant]
     Active Substance: DULAGLUTIDE
     Dosage: UNK
     Route: 065
  15. DEXART [Concomitant]
     Active Substance: DEXAMETHASONE SODIUM PHOSPHATE
     Dosage: 6.6 MG, ONCE EVERY 1 MO
     Route: 050
  16. CRAVIT [Concomitant]
     Active Substance: LEVOFLOXACIN
     Dosage: 500 MG, QD
     Route: 048
     Dates: start: 201708
  17. RANMARK [Suspect]
     Active Substance: DENOSUMAB
     Indication: METASTASES TO BONE
     Dosage: 120 MILLIGRAM, Q4WK
     Route: 058
     Dates: start: 201708, end: 20181010
  18. RANMARK [Suspect]
     Active Substance: DENOSUMAB
     Dosage: 120 MILLIGRAM, QMO
     Route: 058
     Dates: start: 201709, end: 20181010
  19. INSULIN GLARGINE [Concomitant]
     Active Substance: INSULIN GLARGINE
     Dosage: UNK
     Route: 065
  20. DEXART [Concomitant]
     Active Substance: DEXAMETHASONE SODIUM PHOSPHATE
     Dosage: 6.6 MG, ONCE EVERY 1 MO
     Route: 050
  21. DEXART [Concomitant]
     Active Substance: DEXAMETHASONE SODIUM PHOSPHATE
     Dosage: 6.6 MG, ONCE EVERY 1 MO
     Route: 050
  22. JEVTANA [Concomitant]
     Active Substance: CABAZITAXEL
     Dosage: 39 MG, ONCE EVERY 1 MO
     Route: 050

REACTIONS (4)
  - Ascites [Unknown]
  - Tooth disorder [Unknown]
  - Death [Fatal]
  - Osteonecrosis of jaw [Not Recovered/Not Resolved]

NARRATIVE: CASE EVENT DATE: 201709
